FAERS Safety Report 8938168 (Version 1)
Quarter: 2012Q4

REPORT INFORMATION
  Report Type: 
  Country: US (occurrence: US)
  Receive Date: 20121130
  Receipt Date: 20121130
  Transmission Date: 20130627
  Serious: Yes (Death, Hospitalization)
  Sender: FDA-Public Use
  Company Number: US-SHIRE-ALL1-2012-03962

PATIENT
  Age: 36 Year
  Sex: Female
  Weight: 62 kg

DRUGS (4)
  1. FOSRENOL [Suspect]
     Indication: RENAL FAILURE CHRONIC
     Dosage: 1000 mg, 3x/day:tid
     Route: 048
     Dates: start: 201103
  2. FOSRENOL [Suspect]
     Indication: HYPERPHOSPHATAEMIA
  3. HECTOROL [Concomitant]
     Indication: HYPERPARATHYROIDISM SECONDARY
     Dosage: 4 ?g, Other (3 times per week)
     Route: 042
     Dates: start: 201007
  4. EPOGEN [Concomitant]
     Indication: PRODUCT USED FOR UNKNOWN INDICATION
     Dosage: 6600 IU, Other (3 times per week)
     Route: 042
     Dates: start: 20120620

REACTIONS (2)
  - Sepsis [Not Recovered/Not Resolved]
  - Death [Fatal]
